FAERS Safety Report 6591133-2 (Version None)
Quarter: 2010Q1

REPORT INFORMATION
  Report Type: 
  Country: None (occurrence: None)
  Receive Date: 20100219
  Receipt Date: 20090430
  Transmission Date: 20100710
  Serious: No
  Sender: FDA-Public Use
  Company Number: US-BRISTOL-MYERS SQUIBB COMPANY-14606941

PATIENT
  Sex: Female

DRUGS (1)
  1. KENALOG [Suspect]
     Indication: BURSITIS
     Route: 014

REACTIONS (6)
  - DIZZINESS [None]
  - HEAD DISCOMFORT [None]
  - MIGRAINE [None]
  - SKIN DISCOLOURATION [None]
  - VISUAL IMPAIRMENT [None]
  - VOMITING [None]
